FAERS Safety Report 10233316 (Version 1)
Quarter: 2014Q2

REPORT INFORMATION
  Report Type: Spontaneous
  Country: GB (occurrence: GB)
  Receive Date: 20140612
  Receipt Date: 20140612
  Transmission Date: 20141212
  Serious: Yes (Other)
  Sender: FDA-Public Use
  Company Number: GB-ACTAVIS-2014-12012

PATIENT
  Sex: Female

DRUGS (2)
  1. CO-CODAMOL [Suspect]
     Indication: PRODUCT USED FOR UNKNOWN INDICATION
     Dosage: UNK, SINGLE DOSE
     Route: 065
     Dates: start: 199701
  2. PROZAC [Suspect]
     Indication: DEPRESSION
     Dosage: 40 MG, BID
     Route: 048
     Dates: start: 199309, end: 199701

REACTIONS (5)
  - Suicidal ideation [Recovered/Resolved]
  - Psychomotor hyperactivity [Recovered/Resolved]
  - Insomnia [Recovered/Resolved]
  - Prescribed overdose [Recovered/Resolved]
  - Intentional overdose [Recovered/Resolved]
